FAERS Safety Report 13987947 (Version 1)
Quarter: 2017Q3

REPORT INFORMATION
  Report Type: Report from Study
  Country: CA (occurrence: CA)
  Receive Date: 20170919
  Receipt Date: 20170919
  Transmission Date: 20171128
  Serious: Yes (Hospitalization, Other)
  Sender: FDA-Public Use
  Company Number: PHHY2017CA064192

PATIENT
  Age: 59 Year
  Sex: Male
  Weight: 76 kg

DRUGS (20)
  1. LASIX [Concomitant]
     Active Substance: FUROSEMIDE
     Dosage: 40 MG, BID
     Route: 048
     Dates: start: 20170428
  2. LASIX [Concomitant]
     Active Substance: FUROSEMIDE
     Dosage: 120 MG, UNK
     Route: 048
     Dates: start: 20170428
  3. BISOPROLOL [Concomitant]
     Active Substance: BISOPROLOL
     Indication: PRODUCT USED FOR UNKNOWN INDICATION
     Dosage: 7.5 MG, UNK
     Route: 048
     Dates: start: 20161109
  4. LASIX [Concomitant]
     Active Substance: FUROSEMIDE
     Dosage: 120 MG, UNK
     Route: 042
     Dates: start: 20170427, end: 20170427
  5. ENTRESTO [Suspect]
     Active Substance: SACUBITRIL\VALSARTAN
     Indication: CARDIAC FAILURE CHRONIC
     Dosage: 100 MG, BID (49/51 MG, 2DF)
     Route: 048
     Dates: start: 20160622, end: 20160814
  6. LASIX [Concomitant]
     Active Substance: FUROSEMIDE
     Indication: PRODUCT USED FOR UNKNOWN INDICATION
     Dosage: 20 MG, TID
     Route: 048
     Dates: start: 20170120, end: 20170427
  7. WARFARINE [Concomitant]
     Active Substance: WARFARIN
     Indication: PRODUCT USED FOR UNKNOWN INDICATION
     Dosage: 5 MG, UNK
     Route: 048
     Dates: start: 19820514
  8. ENTRESTO [Suspect]
     Active Substance: SACUBITRIL\VALSARTAN
     Dosage: 300 MG, QD (49/51 MG AM, 97/103 MG HS)
     Route: 048
     Dates: start: 20170120
  9. LASIX [Suspect]
     Active Substance: FUROSEMIDE
     Indication: PRODUCT USED FOR UNKNOWN INDICATION
     Dosage: 40 MG, TID
     Route: 042
  10. DIGOXIN. [Concomitant]
     Active Substance: DIGOXIN
     Indication: PRODUCT USED FOR UNKNOWN INDICATION
     Dosage: 0.125 MG, UNK
     Route: 048
     Dates: start: 20161109
  11. ENTRESTO [Suspect]
     Active Substance: SACUBITRIL\VALSARTAN
     Indication: HYPERTENSION
     Dosage: 300 MG, QD (49/51 MG, 97/103 MG)
     Route: 048
     Dates: start: 20160815, end: 20160927
  12. ASAPHEN [Concomitant]
     Active Substance: ASPIRIN
     Indication: PRODUCT USED FOR UNKNOWN INDICATION
     Dosage: 80 MG, UNK
     Route: 048
     Dates: start: 20050915
  13. SPIRONOLACTONE. [Concomitant]
     Active Substance: SPIRONOLACTONE
     Indication: PRODUCT USED FOR UNKNOWN INDICATION
     Dosage: 12.5 MG, UNK
     Route: 048
     Dates: start: 20170116
  14. FUROSEMIDE. [Concomitant]
     Active Substance: FUROSEMIDE
     Dosage: 80 MG, UNK
     Route: 048
     Dates: start: 20170428
  15. ALLOPURINOL. [Concomitant]
     Active Substance: ALLOPURINOL
     Indication: PRODUCT USED FOR UNKNOWN INDICATION
     Dosage: 100 MG, UNK
     Route: 048
     Dates: start: 20150504
  16. ROSUVASTATINE [Concomitant]
     Active Substance: ROSUVASTATIN
     Indication: PRODUCT USED FOR UNKNOWN INDICATION
     Dosage: 20 MG, UNK
     Route: 048
     Dates: start: 20161109
  17. FUROSEMIDE. [Concomitant]
     Active Substance: FUROSEMIDE
     Indication: PRODUCT USED FOR UNKNOWN INDICATION
     Dosage: 120 MG, UNK
     Route: 042
     Dates: start: 20170427, end: 20170427
  18. ENTRESTO [Suspect]
     Active Substance: SACUBITRIL\VALSARTAN
     Indication: TACHYCARDIA
     Dosage: 200MG, BID (97/103 MG 2 DF)
     Route: 048
     Dates: start: 20160928, end: 20170119
  19. K-DUR [Concomitant]
     Active Substance: POTASSIUM CHLORIDE
     Indication: PRODUCT USED FOR UNKNOWN INDICATION
     Dosage: 10 MG, UNK
     Route: 048
     Dates: start: 20170428
  20. FUROSEMIDE. [Concomitant]
     Active Substance: FUROSEMIDE
     Dosage: 120 MG, UNK
     Route: 048
     Dates: start: 20170428

REACTIONS (16)
  - Diarrhoea [Recovered/Resolved]
  - Ventricular tachycardia [Recovered/Resolved]
  - Dyspnoea [Unknown]
  - Cardiac failure [Recovered/Resolved]
  - Weight increased [Unknown]
  - Acute kidney injury [Not Recovered/Not Resolved]
  - Insomnia [Unknown]
  - Acute kidney injury [Recovered/Resolved]
  - Hyperkalaemia [Recovered/Resolved]
  - Hypotension [Not Recovered/Not Resolved]
  - Abdominal distension [Unknown]
  - Suffocation feeling [Unknown]
  - Pulmonary oedema [Unknown]
  - Inappropriate schedule of drug administration [Unknown]
  - Urine output decreased [Unknown]
  - Upper respiratory tract infection [Recovered/Resolved]

NARRATIVE: CASE EVENT DATE: 20161224
